FAERS Safety Report 9251740 (Version 4)
Quarter: 2013Q3

REPORT INFORMATION
  Report Type: Report from Study
  Country: US (occurrence: US)
  Receive Date: 20130424
  Receipt Date: 20130712
  Transmission Date: 20140515
  Serious: Yes (Hospitalization)
  Sender: FDA-Public Use
  Company Number: US-PFIZER INC-2013056958

PATIENT
  Age: 78 Year
  Sex: Male

DRUGS (17)
  1. SUNITINIB MALATE [Suspect]
     Dosage: 37.5 MG, 1X/DAY
     Route: 048
     Dates: start: 20121130, end: 20121210
  2. DASATINIB [Suspect]
     Dosage: 100 MG, 1X/DAY
     Route: 048
     Dates: start: 20120920, end: 20121031
  3. ABIRATERONE ACETATE [Suspect]
     Dosage: 1000 MG, 1X/DAY
     Route: 048
     Dates: start: 20120531, end: 20121210
  4. ADVIL [Suspect]
  5. HYDROCHLOROTHIAZIDE [Suspect]
     Dosage: 25 MG, 1X/DAY
     Route: 048
  6. POTASSIUM CHLORIDE [Suspect]
     Dosage: 20 MEQ, UNK
  7. ADVAIR DISKUS [Suspect]
     Dosage: 100/50 MG, 2X/DAY
     Route: 055
  8. ASPIRIN [Suspect]
     Dosage: 325 MG, 1X/DAY
     Route: 048
  9. COMBIVENT [Suspect]
     Dosage: 14.7 G, AS NEEDED
     Route: 055
  10. COREG [Suspect]
     Dosage: 6.25 MG, UNK
     Route: 048
  11. NORCO [Suspect]
     Dosage: 5/325 MG, 4X/DAY (EVERY 6 HOURS)
     Route: 048
  12. ZOMETA [Suspect]
     Dosage: 4 MG, ANNUALLY
     Route: 042
  13. LUPRON [Suspect]
     Dosage: 22.5 MG, EVERY 3 MONTHS
     Route: 030
  14. CARAFATE [Suspect]
     Dosage: 10 ML,
  15. XOPENEX [Suspect]
     Dosage: 2 DF, 1X/DAY
  16. HYDROMORPHONE [Suspect]
     Dosage: 2 MG,
  17. AUGMENTIN [Suspect]
     Dosage: 875 MG, 2X/DAY
     Route: 048

REACTIONS (6)
  - Stomatitis [Recovered/Resolved]
  - Neutropenia [None]
  - Fatigue [None]
  - Haemoglobin decreased [None]
  - Culture urine positive [None]
  - Staphylococcus test positive [None]
